FAERS Safety Report 4469952-8 (Version None)
Quarter: 2004Q3

REPORT INFORMATION
  Report Type: 
  Country: None (occurrence: None)
  Receive Date: 20040917
  Receipt Date: 20040706
  Transmission Date: 20050211
  Serious: No
  Sender: FDA-Public Use
  Company Number: US-JNJFOC-20040701981

PATIENT
  Age: 33 Year
  Sex: Female
  Weight: 77.1115 kg

DRUGS (3)
  1. ORTHO EVRA [Suspect]
     Indication: CONTRACEPTION
     Dosage: 1 DOSE(S), 3 IN 4 WEEK, TRANSDERMAL
     Route: 062
     Dates: start: 20040617
  2. ORTHO TRI-CYCLEN [Suspect]
     Indication: DRUG USE FOR UNKNOWN INDICATION
     Dosage: 1 DOSE(S), 1 IN 1 DAY, ORAL
     Route: 048
  3. IBUPROFEN [Concomitant]

REACTIONS (3)
  - MUSCLE CRAMP [None]
  - OEDEMA PERIPHERAL [None]
  - PAIN IN EXTREMITY [None]
